FAERS Safety Report 10408690 (Version 2)
Quarter: 2014Q3

REPORT INFORMATION
  Report Type: Report from Study
  Country: US (occurrence: US)
  Receive Date: 20140826
  Receipt Date: 20140829
  Transmission Date: 20150326
  Serious: Yes (Life-Threatening)
  Sender: FDA-Public Use
  Company Number: US-ROCHE-1454431

PATIENT
  Sex: Male

DRUGS (2)
  1. XOLAIR [Suspect]
     Active Substance: OMALIZUMAB
     Indication: URTICARIA CHRONIC
     Route: 065
  2. PEPCID [Concomitant]
     Active Substance: FAMOTIDINE

REACTIONS (3)
  - Anaphylactic reaction [Recovered/Resolved]
  - Vocal cord disorder [Recovered/Resolved]
  - Aphonia [Recovered/Resolved]
